FAERS Safety Report 7676820-7 (Version None)
Quarter: 2011Q3

REPORT INFORMATION
  Report Type: 
  Country: None (occurrence: None)
  Receive Date: 20110811
  Receipt Date: 20110801
  Transmission Date: 20111222
  Serious: Yes (Hospitalization)
  Sender: FDA-Public Use
  Company Number: US-JNJFOC-20080703371

PATIENT
  Sex: Female
  Weight: 34.6 kg

DRUGS (7)
  1. ZOSYN [Concomitant]
  2. INFLIXIMAB [Suspect]
     Indication: COLITIS ULCERATIVE
     Dosage: 1ST INFUSION
     Route: 042
     Dates: start: 20080617
  3. PREDNISONE [Concomitant]
  4. PREVACID [Concomitant]
  5. VANCOMYCIN [Concomitant]
  6. INFLIXIMAB [Suspect]
     Dosage: MOST RECENT INFUSION
     Route: 042
     Dates: start: 20080702
  7. MESALAMINE [Concomitant]
     Route: 048

REACTIONS (1)
  - COLITIS ULCERATIVE [None]
